FAERS Safety Report 23690633 (Version 3)
Quarter: 2024Q3

REPORT INFORMATION
  Report Type: Report from Study
  Country: US (occurrence: US)
  Receive Date: 20240401
  Receipt Date: 20240724
  Transmission Date: 20241017
  Serious: Yes (Hospitalization, Other)
  Sender: ABBVIE
  Company Number: US-ABBVIE-5699484

PATIENT
  Age: 48 Year
  Sex: Male
  Weight: 76 kg

DRUGS (8)
  1. HUMIRA [Suspect]
     Active Substance: ADALIMUMAB
     Indication: Psoriatic arthropathy
     Dosage: CITRATE FREE?STRENGTH: 40 MG
     Route: 058
     Dates: start: 202301, end: 202401
  2. HUMIRA [Suspect]
     Active Substance: ADALIMUMAB
     Dosage: FORM STRENGTH: 40 MILLIGRAM?CITRATE FREE
     Route: 058
     Dates: start: 20200101
  3. HUMIRA [Suspect]
     Active Substance: ADALIMUMAB
     Dosage: CITRATE FREE?STRENGTH: 40 MG
     Route: 058
     Dates: start: 20240401
  4. HUMIRA [Suspect]
     Active Substance: ADALIMUMAB
     Dosage: FORM STRENGTH: 40 MILLIGRAM?CITRATE FREE
     Route: 058
     Dates: start: 2021, end: 202212
  5. HUMIRA [Suspect]
     Active Substance: ADALIMUMAB
     Dosage: FORM STRENGTH: 40 MILLIGRAM?CITRATE FREE
     Route: 058
     Dates: start: 2017
  6. VALSARTAN [Concomitant]
     Active Substance: VALSARTAN
     Indication: Blood pressure abnormal
     Route: 065
     Dates: start: 2014
  7. PREDNISOLONE [Concomitant]
     Active Substance: PREDNISOLONE
     Indication: Iritis
     Route: 065
     Dates: start: 20240320
  8. CIALIS [Concomitant]
     Active Substance: TADALAFIL
     Indication: Product used for unknown indication
     Route: 065

REACTIONS (18)
  - Cardiac valve disease [Recovered/Resolved]
  - Sjogren^s syndrome [Recovering/Resolving]
  - Staphylococcal infection [Recovered/Resolved]
  - Cataract [Recovered/Resolved]
  - Psoriatic arthropathy [Recovering/Resolving]
  - Iritis [Recovering/Resolving]
  - Off label use [Unknown]
  - Arthralgia [Recovered/Resolved]
  - Myocardial infarction [Recovered/Resolved]
  - Coronary arterial stent insertion [Recovered/Resolved]
  - Staphylococcal infection [Recovered/Resolved]
  - Nasal septum deviation [Recovered/Resolved]
  - Iritis [Recovered/Resolved]
  - Coronary artery occlusion [Recovered/Resolved]
  - Hypersomnia [Recovered/Resolved]
  - Insomnia [Unknown]
  - Acute myocardial infarction [Recovered/Resolved]
  - Hypersomnia [Unknown]

NARRATIVE: CASE EVENT DATE: 20200101
